FAERS Safety Report 13957489 (Version 3)
Quarter: 2017Q4

REPORT INFORMATION
  Report Type: Spontaneous
  Country: BR (occurrence: BR)
  Receive Date: 20170912
  Receipt Date: 20171027
  Transmission Date: 20180320
  Serious: Yes (Other)
  Sender: FDA-Public Use
  Company Number: BR-AMGEN-BRASP2016068673

PATIENT
  Age: 68 Year
  Sex: Male

DRUGS (4)
  1. METHOTREXATE. [Concomitant]
     Active Substance: METHOTREXATE
     Dosage: UNK
  2. ENBREL [Suspect]
     Active Substance: ETANERCEPT
     Indication: PSORIASIS
     Dosage: 50MG, WEEKLY (1 APPLICATION ON THURSDAYS)
     Route: 065
     Dates: start: 201602
  3. ENBREL [Suspect]
     Active Substance: ETANERCEPT
     Dosage: 1 DF, WEEKLY (1 APPLICATION ON THURSDAYS)
     Route: 065
  4. GARDENAL [Concomitant]
     Active Substance: PHENOBARBITAL
     Indication: EPILEPSY
     Dosage: UNK

REACTIONS (7)
  - Pyrexia [Recovered/Resolved]
  - Gastric neoplasm [Recovered/Resolved]
  - Gallbladder neoplasm [Not Recovered/Not Resolved]
  - Fall [Recovered/Resolved]
  - Renal neoplasm [Not Recovered/Not Resolved]
  - Rib fracture [Recovered/Resolved]
  - Ligament sprain [Recovered/Resolved]

NARRATIVE: CASE EVENT DATE: 2016
